FAERS Safety Report 14371389 (Version 2)
Quarter: 2018Q2

REPORT INFORMATION
  Report Type: Report from Study
  Country: FR (occurrence: FR)
  Receive Date: 20180110
  Receipt Date: 20180411
  Transmission Date: 20180711
  Serious: Yes (Other)
  Sender: FDA-Public Use
  Company Number: PHHY2018FR000835

PATIENT
  Age: 65 Year
  Sex: Female
  Weight: 48 kg

DRUGS (8)
  1. CGP 42446 [Suspect]
     Active Substance: ZOLEDRONATE DISODIUM
     Indication: NEOPLASM
     Dosage: 4 MG, (6 CYCLES PERFORMED)
     Route: 042
     Dates: start: 20150428
  2. METHOTREXATE SODIUM. [Suspect]
     Active Substance: METHOTREXATE SODIUM
     Indication: NEOPLASM
     Dosage: 5 MG, (6 CYCLES PERFORMED)
     Route: 048
     Dates: start: 20150428
  3. SIROLIMUS. [Suspect]
     Active Substance: SIROLIMUS
     Indication: NEOPLASM
     Dosage: 4 MG, (6 CYCLES PERFORMED)
     Route: 048
     Dates: start: 20150425
  4. SIROLIMUS. [Suspect]
     Active Substance: SIROLIMUS
     Indication: METASTASES TO BONE
  5. CGP 42446 [Suspect]
     Active Substance: ZOLEDRONATE DISODIUM
     Indication: METASTASES TO BONE
  6. ENDOXAN [Suspect]
     Active Substance: CYCLOPHOSPHAMIDE
     Indication: NEOPLASM
     Dosage: 100 MG, (6 CYCLES PERFORMED)
     Route: 048
     Dates: start: 20150428
  7. METHOTREXATE SODIUM. [Suspect]
     Active Substance: METHOTREXATE SODIUM
     Indication: METASTASES TO BONE
  8. LEVOTHYROX [Concomitant]
     Active Substance: LEVOTHYROXINE
     Indication: HYPOTHYROIDISM
     Dosage: UNK
     Route: 065

REACTIONS (4)
  - Malignant neoplasm progression [Unknown]
  - Metastases to bone [Unknown]
  - Lymphopenia [Recovered/Resolved]
  - Neoplasm [Unknown]

NARRATIVE: CASE EVENT DATE: 20151014
